FAERS Safety Report 5599346-3 (Version None)
Quarter: 2008Q1

REPORT INFORMATION
  Report Type: 
  Country: None (occurrence: None)
  Receive Date: 20080117
  Receipt Date: 20080103
  Transmission Date: 20080703
  Serious: Yes (Death, Other)
  Sender: FDA-Public Use
  Company Number: 2007EN000107

PATIENT
  Age: 36 Year
  Sex: Male

DRUGS (22)
  1. ABELCET [Suspect]
     Indication: PNEUMOCOCCAL SEPSIS
     Dosage: 375 MG; QD; IV
     Route: 042
     Dates: start: 20070925, end: 20071019
  2. ABELCET [Suspect]
     Indication: ZYGOMYCOSIS
     Dosage: 375 MG; QD; IV
     Route: 042
     Dates: start: 20070925, end: 20071019
  3. VORICONAZOLE [Concomitant]
  4. CASPOFUNGIN [Concomitant]
  5. VALGANCICLOVIR HCL [Concomitant]
  6. FENTANYL [Concomitant]
  7. CYCLOSPORINE [Concomitant]
  8. INSULIN [Concomitant]
  9. FUROSEMIDE [Concomitant]
  10. POTASSIUM CHLORIDE [Concomitant]
  11. PROPOFOL [Concomitant]
  12. HYDROCORTISONE [Concomitant]
  13. COTRIM [Concomitant]
  14. LORAZEPAM [Concomitant]
  15. HALOPERIDOL [Concomitant]
  16. MYCOPHENOLATE MOFETIL [Concomitant]
  17. PARACETAMOL [Concomitant]
  18. ESOMEPRAZOLE [Concomitant]
  19. ACETAZOLAMIDE [Concomitant]
  20. HEPARIN [Concomitant]
  21. THIAMAZOLE [Concomitant]
  22. LEVOTHYROXINE SODIUM [Concomitant]

REACTIONS (5)
  - ADRENAL INSUFFICIENCY [None]
  - BRADYCARDIA [None]
  - CARDIAC DEATH [None]
  - HYPERKALAEMIA [None]
  - VENTRICULAR FIBRILLATION [None]
